FAERS Safety Report 4633448-0 (Version None)
Quarter: 2005Q2

REPORT INFORMATION
  Report Type: 
  Country: None (occurrence: None)
  Receive Date: 20050408
  Receipt Date: 20050401
  Transmission Date: 20051028
  Serious: Yes (Hospitalization)
  Sender: FDA-Public Use
  Company Number: 2005UW04762

PATIENT
  Age: 15 Year
  Sex: Male
  Weight: 88.905 kg

DRUGS (12)
  1. SEROQUEL [Suspect]
     Indication: BIPOLAR I DISORDER
     Dosage: 200 MG BID PO
     Route: 048
     Dates: start: 20050316, end: 20050317
  2. SEROQUEL [Suspect]
     Indication: MANIA
     Dosage: 200 MG BID PO
     Route: 048
     Dates: start: 20050316, end: 20050317
  3. LITHIUM CARBONATE [Concomitant]
  4. RISPERIDONE [Concomitant]
  5. TENEX [Concomitant]
  6. ADDERALL 20 [Concomitant]
  7. DIPHENHYDRAMINE HCL [Concomitant]
  8. LORAZEPAM [Concomitant]
  9. ZIPRASIDONE [Concomitant]
  10. HYDROXYZINE [Concomitant]
  11. IBUPROFEN [Concomitant]
  12. STRIDEX TOPICAL [Concomitant]

REACTIONS (5)
  - AGGRESSION [None]
  - AGITATION [None]
  - IRRITABILITY [None]
  - MANIA [None]
  - THIRST [None]
